FAERS Safety Report 6215640-7 (Version None)
Quarter: 2009Q2

REPORT INFORMATION
  Report Type: 
  Country: None (occurrence: None)
  Receive Date: 20090603
  Receipt Date: 20090603
  Transmission Date: 20091009
  Serious: Yes (Disabling)
  Sender: FDA-Public Use
  Company Number: None

PATIENT
  Sex: Female
  Weight: 81.6475 kg

DRUGS (1)
  1. OMNIPRED [Suspect]
     Indication: ANTIBIOTIC THERAPY
     Dosage: 1 DROP 4 TIMES DAILY
     Dates: start: 20080601

REACTIONS (1)
  - IMPAIRED HEALING [None]
